FAERS Safety Report 5618918-0 (Version None)
Quarter: 2008Q1

REPORT INFORMATION
  Report Type: 
  Country: None (occurrence: None)
  Receive Date: 20080207
  Receipt Date: 20080125
  Transmission Date: 20080703
  Serious: Yes (Death, Hospitalization)
  Sender: FDA-Public Use
  Company Number: US-KINGPHARMUSA00001-K200800141

PATIENT

DRUGS (4)
  1. ALTACE [Suspect]
     Dosage: 5 MG, QD
     Route: 048
  2. DOCETAXEL [Suspect]
     Indication: LARYNGEAL CANCER
     Dosage: 75 MG/M 2 CYCLICALLY
     Route: 042
     Dates: start: 20071130, end: 20071204
  3. FLUOROURACIL [Suspect]
     Indication: LARYNGEAL CANCER
     Dosage: 750 MG/M 2 EVERY DAY
     Dates: start: 20071130, end: 20071204
  4. CISPLATIN [Suspect]
     Indication: LARYNGEAL CANCER
     Dosage: 75 MG/M** 2 EVERY DAY
     Dates: start: 20071130, end: 20071130

REACTIONS (4)
  - CLOSTRIDIAL INFECTION [None]
  - LEUKOPENIA [None]
  - PAIN IN EXTREMITY [None]
  - SHOCK [None]
